FAERS Safety Report 7152072-1 (Version None)
Quarter: 2010Q4

REPORT INFORMATION
  Report Type: 
  Country: None (occurrence: None)
  Receive Date: 20101209
  Receipt Date: 20101209
  Transmission Date: 20110411
  Serious: Yes (Other)
  Sender: FDA-Public Use
  Company Number: None

PATIENT
  Age: 40 Year
  Sex: Female
  Weight: 63.05 kg

DRUGS (2)
  1. LEVAQUIN [Suspect]
     Indication: LUNG DISORDER
     Dosage: 1 1/DAY PO
     Route: 048
     Dates: start: 20101110, end: 20101112
  2. LEVAQUIN [Suspect]
     Indication: POST PROCEDURAL COMPLICATION
     Dosage: 1 1/DAY PO
     Route: 048
     Dates: start: 20101110, end: 20101112

REACTIONS (4)
  - ARTHROPATHY [None]
  - HALLUCINATION [None]
  - HEART RATE INCREASED [None]
  - INSOMNIA [None]
